FAERS Safety Report 9484222 (Version 2)
Quarter: 2013Q3

REPORT INFORMATION
  Report Type: Spontaneous
  Country: CA (occurrence: CA)
  Receive Date: 20130828
  Receipt Date: 20130828
  Transmission Date: 20140515
  Serious: Yes (Other)
  Sender: FDA-Public Use
  Company Number: CA-AMGEN-KDL350001

PATIENT
  Age: 19 Year
  Sex: Male
  Weight: 47.7 kg

DRUGS (1)
  1. ENBREL [Suspect]
     Indication: ANKYLOSING SPONDYLITIS
     Dosage: UNK UNK, QWK
     Route: 065
     Dates: start: 20090603

REACTIONS (5)
  - Blood glucose abnormal [Recovering/Resolving]
  - Hyperhidrosis [Recovering/Resolving]
  - Ankylosing spondylitis [Recovering/Resolving]
  - Impaired healing [Recovering/Resolving]
  - Pyrexia [Recovered/Resolved]
